FAERS Safety Report 5118856-6 (Version None)
Quarter: 2006Q3

REPORT INFORMATION
  Report Type: 
  Country: None (occurrence: None)
  Receive Date: 20060927
  Receipt Date: 20060914
  Transmission Date: 20061208
  Serious: Yes (Other)
  Sender: FDA-Public Use
  Company Number: 2006111465

PATIENT
  Age: 75 Year
  Sex: Female
  Weight: 53.978 kg

DRUGS (1)
  1. ZITHROMAX [Suspect]
     Indication: BRONCHITIS
     Dosage: 250 MG
     Dates: start: 20060908, end: 20060910

REACTIONS (2)
  - DIARRHOEA [None]
  - RECTAL HAEMORRHAGE [None]
